FAERS Safety Report 4533208-5 (Version None)
Quarter: 2004Q4

REPORT INFORMATION
  Report Type: 
  Country: None (occurrence: None)
  Receive Date: 20041107
  Receipt Date: 20031218
  Transmission Date: 20050328
  Serious: No
  Sender: FDA-Public Use
  Company Number: 700331

PATIENT
  Sex: Male
  Weight: 63.5036 kg

DRUGS (16)
  1. DIANEAL [Suspect]
     Indication: PERITONEAL DIALYSIS
     Dosage: 6.0 L;INTRAPERITONEAL
     Route: 033
  2. DIANEAL [Suspect]
     Dosage: 2.5 L;INTRAPERITONEAL
     Route: 033
  3. COZAAR [Concomitant]
  4. CEPHULAC [Concomitant]
  5. NIFAREX FORTE [Concomitant]
  6. VITAMIN C [Concomitant]
  7. NEPHROVITE [Concomitant]
  8. INSULIN [Concomitant]
  9. EPOGEN [Concomitant]
  10. KCL TAB [Concomitant]
  11. RENAGEL [Concomitant]
  12. TUMS [Concomitant]
  13. BACTROBAN [Concomitant]
  14. OSCAL [Concomitant]
  15. ROCALTROL [Concomitant]
  16. NORVASC [Concomitant]

REACTIONS (1)
  - PERITONITIS [None]
